FAERS Safety Report 6666790-2 (Version None)
Quarter: 2010Q2

REPORT INFORMATION
  Report Type: 
  Country: None (occurrence: None)
  Receive Date: 20100405
  Receipt Date: 20100326
  Transmission Date: 20101027
  Serious: Yes (Other)
  Sender: FDA-Public Use
  Company Number: GB-ASTRAZENECA-2010SE13442

PATIENT
  Age: 61 Year
  Sex: Male

DRUGS (4)
  1. QUETIAPINE [Suspect]
     Indication: ANXIETY
     Route: 048
     Dates: start: 20100211, end: 20100215
  2. QUETIAPINE [Suspect]
     Indication: PSYCHOTIC DISORDER
     Route: 048
     Dates: start: 20100211, end: 20100215
  3. OLANZAPINE [Concomitant]
     Indication: PSYCHOTIC DISORDER
     Route: 048
     Dates: start: 20100110
  4. THYROXINE [Concomitant]
     Indication: HYPOTHYROIDISM
     Route: 048
     Dates: start: 19970101

REACTIONS (3)
  - ERYTHEMA [None]
  - LACRIMATION INCREASED [None]
  - SWELLING [None]
